FAERS Safety Report 22594502 (Version 2)
Quarter: 2024Q1

REPORT INFORMATION
  Report Type: Spontaneous
  Country: US (occurrence: US)
  Receive Date: 20230613
  Receipt Date: 20240214
  Transmission Date: 20240410
  Serious: No
  Sender: FDA-Public Use
  Company Number: US-GLENMARK PHARMACEUTICALS-2023GMK081053

PATIENT

DRUGS (6)
  1. OLMESARTAN MEDOXOMIL [Suspect]
     Active Substance: OLMESARTAN MEDOXOMIL
     Indication: Hypertension
     Dosage: UNK
     Route: 048
     Dates: start: 202301
  2. OLMESARTAN MEDOXOMIL [Suspect]
     Active Substance: OLMESARTAN MEDOXOMIL
     Dosage: 15 MILLIGRAM, TID (SECOND REFILL IN MARCH)
     Route: 048
     Dates: start: 202303
  3. OLMESARTAN MEDOXOMIL [Suspect]
     Active Substance: OLMESARTAN MEDOXOMIL
     Dosage: UNK (EVENTUALLY, THE PHARMACIST GAVE HER A NEW SUPPLY OF MEDICATION WHICH WAS LASTED FOR 10 DAYS SUP
     Route: 048
     Dates: start: 202304
  4. LOSARTAN [Concomitant]
     Active Substance: LOSARTAN
     Indication: Blood pressure measurement
     Dosage: UNK
     Route: 065
  5. HYDRALAZINE [Concomitant]
     Active Substance: HYDRALAZINE HYDROCHLORIDE
     Indication: Blood pressure measurement
     Dosage: UNK
     Route: 065
  6. CLONIDINE [Concomitant]
     Active Substance: CLONIDINE
     Indication: Hypertension
     Dosage: UNK
     Route: 065

REACTIONS (6)
  - Cold sweat [Unknown]
  - Headache [Unknown]
  - Blood pressure increased [Not Recovered/Not Resolved]
  - Dizziness [Unknown]
  - Product quality issue [Unknown]
  - Drug ineffective [Unknown]

NARRATIVE: CASE EVENT DATE: 20230101
